FAERS Safety Report 5064845-X (Version None)
Quarter: 2006Q3

REPORT INFORMATION
  Report Type: 
  Country: None (occurrence: None)
  Receive Date: 20060725
  Receipt Date: 20060714
  Transmission Date: 20061208
  Serious: Yes (Other)
  Sender: FDA-Public Use
  Company Number: 2006075966

PATIENT
  Age: 78 Year
  Sex: Male
  Weight: 52.1637 kg

DRUGS (9)
  1. LIPITOR [Suspect]
     Indication: DRUG USE FOR UNKNOWN INDICATION
     Dosage: 10 MG (1 IN 1 D), ORAL
     Route: 048
  2. AMIODARONE (AMIODARONE) [Suspect]
     Indication: HEART RATE IRREGULAR
     Dosage: 100 MEQ (1 IN 1 D), ORAL
     Route: 048
  3. PLAVIX [Concomitant]
  4. ALTACE [Concomitant]
  5. COREG [Concomitant]
  6. DIGOXIN [Concomitant]
  7. SPIRONOLACTONE [Concomitant]
  8. NITROQUICK (GLYCERYL TRINITRATE) [Concomitant]
  9. ASPIRIN [Concomitant]

REACTIONS (5)
  - DYSGEUSIA [None]
  - HYPOTHYROIDISM [None]
  - MUSCLE ATROPHY [None]
  - NAUSEA [None]
  - SEXUAL DYSFUNCTION [None]
